FAERS Safety Report 26014429 (Version 2)
Quarter: 2025Q4

REPORT INFORMATION
  Report Type: Spontaneous
  Country: US (occurrence: US)
  Receive Date: 20251108
  Receipt Date: 20251115
  Transmission Date: 20260118
  Serious: No
  Sender: SANOFI AVENTIS
  Company Number: US-SA-2025SA328147

PATIENT
  Age: 59 Year
  Sex: Male

DRUGS (3)
  1. DUPIXENT [Suspect]
     Active Substance: DUPILUMAB
     Indication: Asthma
     Dosage: 300 MG, QOW
     Route: 058
     Dates: start: 20250829
  2. IBUPROFEN [Concomitant]
     Active Substance: IBUPROFEN
  3. ALEVE [Concomitant]
     Active Substance: NAPROXEN SODIUM

REACTIONS (6)
  - Migraine [Unknown]
  - Dizziness [Unknown]
  - Headache [Unknown]
  - Wheezing [Unknown]
  - Cough [Unknown]
  - Injection site pain [Unknown]
